FAERS Safety Report 22285176 (Version 1)
Quarter: 2023Q2

REPORT INFORMATION
  Report Type: Spontaneous
  Country: US (occurrence: US)
  Receive Date: 20230504
  Receipt Date: 20230504
  Transmission Date: 20230721
  Serious: No
  Sender: FDA-Public Use
  Company Number: US-JUBILANT PHARMA LTD-2023US000066

PATIENT

DRUGS (2)
  1. RUBY-FILL [Suspect]
     Active Substance: RUBIDIUM CHLORIDE RB-82
     Indication: Product used for unknown indication
     Dosage: (8 MCI, SINGLE DOSE (REST, FIRST ATTEMPT)
     Dates: start: 20230208, end: 20230208
  2. RUBY-FILL [Suspect]
     Active Substance: RUBIDIUM CHLORIDE RB-82
     Dosage: 11 MCI, SINGLE DOSE (REST, SECOND ATTEMPT)
     Dates: start: 20230208, end: 20230208

REACTIONS (3)
  - Drug ineffective [Unknown]
  - Underdose [Unknown]
  - Product delivery mechanism issue [Unknown]
